FAERS Safety Report 18051984 (Version 1)
Quarter: 2020Q3

REPORT INFORMATION
  Report Type: Spontaneous
  Country: DE (occurrence: DE)
  Receive Date: 20200721
  Receipt Date: 20200721
  Transmission Date: 20201103
  Serious: Yes (Other)
  Sender: FDA-Public Use
  Company Number: NVSC2020DE204382

PATIENT
  Sex: Female

DRUGS (1)
  1. AMOXI 500 ? 1 A PHARMA [AMOXICILLIN TRIHYDRATE] [Suspect]
     Active Substance: AMOXICILLIN
     Indication: PERIODONTITIS
     Dosage: 3 DF, QD (3 X 1 DAILY)
     Route: 065

REACTIONS (2)
  - Oesophageal pain [Unknown]
  - Haematemesis [Unknown]
